FAERS Safety Report 5823762-5 (Version None)
Quarter: 2008Q3

REPORT INFORMATION
  Report Type: 
  Country: None (occurrence: None)
  Receive Date: 20080725
  Receipt Date: 20080715
  Transmission Date: 20090109
  Serious: Yes (Other)
  Sender: FDA-Public Use
  Company Number: NL-PFIZER INC-2008059702

PATIENT
  Sex: Male

DRUGS (1)
  1. EPANUTIN INJECTABLE [Suspect]
     Indication: EPILEPSY
     Route: 042

REACTIONS (3)
  - BRADYCARDIA [None]
  - HYPERHIDROSIS [None]
  - HYPOTENSION [None]
